FAERS Safety Report 7267483-3 (Version None)
Quarter: 2011Q1

REPORT INFORMATION
  Report Type: 
  Country: None (occurrence: None)
  Receive Date: 20110121
  Receipt Date: 20100909
  Transmission Date: 20110831
  Serious: Yes (Other)
  Sender: FDA-Public Use
  Company Number: 2008-185657-NL

PATIENT
  Age: 26 Year
  Sex: Female
  Weight: 123.8 kg

DRUGS (4)
  1. TUMS [Concomitant]
  2. SYNTRHOID [Concomitant]
  3. NUVARING [Suspect]
     Indication: CONTRACEPTION
     Dosage: 1 DF; QM; VAG
     Route: 067
     Dates: start: 20060501, end: 20061028
  4. NUVARING [Suspect]
     Indication: MENSTRUATION IRREGULAR
     Dosage: 1 DF; QM; VAG
     Route: 067
     Dates: start: 20060501, end: 20061028

REACTIONS (8)
  - MUSCLE SPASMS [None]
  - PYELONEPHRITIS [None]
  - SMALL INTESTINAL OBSTRUCTION [None]
  - INTERNATIONAL NORMALISED RATIO DECREASED [None]
  - UTERINE LEIOMYOMA [None]
  - MENSTRUATION IRREGULAR [None]
  - DEEP VEIN THROMBOSIS [None]
  - DEVICE EXPULSION [None]
